FAERS Safety Report 16429362 (Version 4)
Quarter: 2019Q3

REPORT INFORMATION
  Report Type: Spontaneous
  Country: US (occurrence: US)
  Receive Date: 20190614
  Receipt Date: 20190717
  Transmission Date: 20191004
  Serious: Yes (Hospitalization, Other)
  Sender: FDA-Public Use
  Company Number: US-SA-2019SA161424

PATIENT
  Age: 57 Year
  Sex: Male

DRUGS (15)
  1. VALACYCLOVIR [Concomitant]
     Active Substance: VALACYCLOVIR HYDROCHLORIDE
     Dosage: UNK
  2. LOVENOX [LEVOFLOXACIN] [Concomitant]
     Dosage: 1 MG/KG, BID
  3. XIFAXAN [Concomitant]
     Active Substance: RIFAXIMIN
     Dosage: 1 DF, BID
     Route: 048
  4. FINASTERIDE. [Concomitant]
     Active Substance: FINASTERIDE
     Dosage: UNK
  5. ANDROGEL [Concomitant]
     Active Substance: TESTOSTERONE
     Dosage: UNK
  6. MOTOFEN [ATROPINE SULFATE;DIFENOXIN HYDROCHLORIDE] [Concomitant]
     Dosage: 1 DF, TID
     Route: 048
  7. MESALAMINE. [Concomitant]
     Active Substance: MESALAMINE
     Dosage: 2 DF, QD
     Route: 048
  8. VITAMIN C [Concomitant]
     Active Substance: ASCORBIC ACID
     Dosage: 1 DF, QD
     Route: 048
  9. PRALUENT [Suspect]
     Active Substance: ALIROCUMAB
     Dosage: UNK
     Dates: start: 20180724
  10. PREDNISONE. [Concomitant]
     Active Substance: PREDNISONE
  11. FLAXSEED [Concomitant]
     Active Substance: FLAX SEED
     Dosage: 3 DF, TID
     Route: 048
  12. OMEGA 3 FISH OIL [FISH OIL] [Concomitant]
     Dosage: 1 DF, QD
     Route: 048
  13. BUDESONIDE. [Concomitant]
     Active Substance: BUDESONIDE
     Dosage: 3 DF, QD
     Route: 048
  14. AZITHROMYCIN ANHYDROUS. [Concomitant]
     Active Substance: AZITHROMYCIN ANHYDROUS
     Dosage: UNK
  15. LEVAQUIN [Concomitant]
     Active Substance: LEVOFLOXACIN

REACTIONS (3)
  - Chest pain [Not Recovered/Not Resolved]
  - Pulmonary embolism [Not Recovered/Not Resolved]
  - Dyspnoea [Not Recovered/Not Resolved]

NARRATIVE: CASE EVENT DATE: 20190601
